FAERS Safety Report 4381696-X (Version None)
Quarter: 2004Q2

REPORT INFORMATION
  Report Type: 
  Country: None (occurrence: None)
  Receive Date: 20040615
  Receipt Date: 20040602
  Transmission Date: 20050107
  Serious: Yes (Hospitalization, Other)
  Sender: FDA-Public Use
  Company Number: US-JNJFOC-20040403766

PATIENT
  Age: 69 Year
  Sex: Female
  Weight: 53.978 kg

DRUGS (31)
  1. REMICADE [Suspect]
     Indication: ANKYLOSING SPONDYLITIS
     Dosage: 200 MG, INTRAVENOUS
     Route: 042
     Dates: start: 20020822
  2. REMICADE [Suspect]
     Dosage: 200 MG , 1 IN 1 DAY, INTRAVENOUS
     Route: 042
     Dates: start: 20020905
  3. REMICADE [Suspect]
     Dosage: 200 MG, 1 IN 1 DAY, INTRAVENOUS
     Route: 042
     Dates: start: 20021008
  4. REMICADE [Suspect]
     Dosage: 200 MG, 1 IN 1 DAY, INTRAVENOUS
     Route: 042
     Dates: start: 20021126
  5. REMICADE [Suspect]
     Dosage: 300 MG, 1 IN 1 DAY, INTRAVENOUS
     Route: 042
     Dates: start: 20030115
  6. REMICADE [Suspect]
     Dosage: 300 MG, 1 IN 1 DAY, INTRAVENOUS
     Route: 042
     Dates: start: 20030317
  7. REMICADE [Suspect]
     Dosage: 300 MG, 1 IN 1 DAY, INTRAVENOUS
     Route: 042
     Dates: start: 20030520
  8. REMICADE [Suspect]
     Dosage: 300 MG , 1 IN 1 DAY, INTRAVENOUS
     Route: 042
     Dates: start: 20030711
  9. REMICADE [Suspect]
     Dosage: 400 MG, 1 IN 1 DAY, INTRAVENOUS
     Route: 042
     Dates: start: 20030909
  10. REMICADE [Suspect]
     Dosage: 400 MG , 1 IN 1 DAY,INTRAVENOUS
     Route: 042
     Dates: start: 20031216
  11. REMICADE [Suspect]
     Dosage: 400 MG, 1 IN 1 DAY, INTRAVENOUS
     Route: 042
     Dates: start: 20040201
  12. REMICADE [Suspect]
     Dosage: 400 MG, 1 IN 1 DAY, INTRAVENOUS
     Route: 042
     Dates: start: 20040406
  13. FOLIC ACID [Concomitant]
  14. EVISTA [Concomitant]
  15. MEGESTROL [Concomitant]
  16. CELEXA [Concomitant]
  17. BEXTRA [Concomitant]
  18. TIZANIDINE HCL [Concomitant]
  19. TEMAZEPAM [Concomitant]
  20. DARVOCET-N 100 [Concomitant]
  21. VITAMIN B12 [Concomitant]
  22. PRILOSEC [Concomitant]
  23. METOCLOPRAMIDE [Concomitant]
  24. ADVAIR (SERETIDE MITE) [Concomitant]
  25. IRON [Concomitant]
  26. VITAMIN D [Concomitant]
  27. CALCIUM [Concomitant]
  28. MAGNESIUM [Concomitant]
  29. ZINC [Concomitant]
  30. B 50 (B-50 [Concomitant]
  31. SUPER ANTIOXIDANT (ALL OTHER THERAPEUTIC PRODUCTS) [Concomitant]

REACTIONS (4)
  - ATELECTASIS [None]
  - LUNG NEOPLASM [None]
  - PNEUMONIA [None]
  - SCAR [None]
